FAERS Safety Report 5756285-2 (Version None)
Quarter: 2008Q2

REPORT INFORMATION
  Report Type: 
  Country: None (occurrence: None)
  Receive Date: 20080602
  Receipt Date: 20080602
  Transmission Date: 20081010
  Serious: Yes (Hospitalization)
  Sender: FDA-Public Use
  Company Number: None

PATIENT
  Weight: 64 kg

DRUGS (1)
  1. PEGASPARGASE 750 UNIT/ML ENZON [Suspect]
     Indication: ACUTE LYMPHOCYTIC LEUKAEMIA
     Dosage: 4200 UNITS OT IM
     Route: 030
     Dates: start: 20080319, end: 20080319

REACTIONS (5)
  - HYPOTENSION [None]
  - LOSS OF CONSCIOUSNESS [None]
  - RASH [None]
  - SYNCOPE [None]
  - URTICARIA [None]
